FAERS Safety Report 17437425 (Version 1)
Quarter: 2020Q1

REPORT INFORMATION
  Report Type: Spontaneous
  Country: US (occurrence: US)
  Receive Date: 20200219
  Receipt Date: 20200219
  Transmission Date: 20200409
  Serious: Yes (Hospitalization)
  Sender: FDA-Public Use
  Company Number: US-NOVOPROD-712674

PATIENT
  Age: 71 Year
  Sex: Female

DRUGS (2)
  1. LEVEMIR [Suspect]
     Active Substance: INSULIN DETEMIR
     Indication: TYPE 2 DIABETES MELLITUS
     Dosage: 37 IU
     Route: 058
     Dates: start: 2013
  2. NOVOLOG [Suspect]
     Active Substance: INSULIN ASPART
     Indication: TYPE 2 DIABETES MELLITUS
     Dosage: 17 UNITS PLUS SLIDING SCALE
     Route: 058
     Dates: start: 2012

REACTIONS (1)
  - Stent placement [Not Recovered/Not Resolved]

NARRATIVE: CASE EVENT DATE: 20160831
